FAERS Safety Report 13360038 (Version 3)
Quarter: 2017Q2

REPORT INFORMATION
  Report Type: Spontaneous
  Country: US (occurrence: US)
  Receive Date: 20170322
  Receipt Date: 20170407
  Transmission Date: 20170830
  Serious: Yes (Hospitalization)
  Sender: FDA-Public Use
  Company Number: US-SAOL THERAPEUTICS-2017SAO00488

PATIENT
  Age: 61 Year
  Sex: Female
  Weight: 56.24 kg

DRUGS (28)
  1. UNSPECIFIED SEIZURE MEDICATIONS (AT LEAST 3 DIFFERNT MEDICATIONS) [Suspect]
     Active Substance: UNSPECIFIED INGREDIENT
  2. RITALIN [Concomitant]
     Active Substance: METHYLPHENIDATE HYDROCHLORIDE
  3. ASPIRIN. [Concomitant]
     Active Substance: ASPIRIN
  4. COLACE [Concomitant]
     Active Substance: DOCUSATE SODIUM
  5. BENZODIAZEPINES (UNSPECIFIED) [Suspect]
     Active Substance: BENZODIAZEPINE
  6. SYNTHROID [Concomitant]
     Active Substance: LEVOTHYROXINE SODIUM
  7. FUROSEMIDE. [Concomitant]
     Active Substance: FUROSEMIDE
  8. NUEDEXTA [Concomitant]
     Active Substance: DEXTROMETHORPHAN HYDROBROMIDE\QUINIDINE SULFATE
     Dosage: UNK
     Dates: end: 20161209
  9. LIORESAL [Suspect]
     Active Substance: BACLOFEN
     Dosage: 160.21 ?G, \DAY
     Dates: start: 20170208
  10. LINZESS [Concomitant]
     Active Substance: LINACLOTIDE
  11. LIORESAL [Suspect]
     Active Substance: BACLOFEN
     Indication: MUSCLE SPASTICITY
     Dosage: 239.91 ?G, \DAY
     Route: 037
     Dates: start: 20151210, end: 20161128
  12. VITAMIN B12 [Concomitant]
     Active Substance: CYANOCOBALAMIN
  13. MULTIVITAMIN [Concomitant]
     Active Substance: VITAMINS
  14. AMIODARONE [Concomitant]
     Active Substance: AMIODARONE
  15. LIORESAL [Suspect]
     Active Substance: BACLOFEN
     Dosage: 168.19 ?G, \DAY
     Dates: start: 20170206, end: 20170208
  16. ARMOUR THYROID [Concomitant]
     Active Substance: THYROID, PORCINE
  17. VITAMIN B1 [Concomitant]
     Active Substance: THIAMINE HYDROCHLORIDE
  18. LIORESAL [Suspect]
     Active Substance: BACLOFEN
     Dosage: 190.19 ?G, \DAY
     Dates: start: 20161128, end: 20161212
  19. PROZAC [Suspect]
     Active Substance: FLUOXETINE HYDROCHLORIDE
  20. PANTOPRAZOLE [Concomitant]
     Active Substance: PANTOPRAZOLE
  21. CRESTOR [Concomitant]
     Active Substance: ROSUVASTATIN CALCIUM
  22. POTASSIUM CHLORIDE. [Concomitant]
     Active Substance: POTASSIUM CHLORIDE
  23. WARFARIN [Concomitant]
     Active Substance: WARFARIN
  24. LIORESAL [Suspect]
     Active Substance: BACLOFEN
     Dosage: 160.21 ?G, \DAY
     Dates: start: 20161212, end: 20170206
  25. CARVEDILOL. [Concomitant]
     Active Substance: CARVEDILOL
  26. GABAPENTIN. [Concomitant]
     Active Substance: GABAPENTIN
  27. ZONISAMIDE. [Concomitant]
     Active Substance: ZONISAMIDE
  28. VITAMIN C [Concomitant]
     Active Substance: ASCORBIC ACID

REACTIONS (4)
  - Somnolence [Recovered/Resolved]
  - Fatigue [Unknown]
  - Trance [Recovered/Resolved]
  - Drug interaction [Unknown]

NARRATIVE: CASE EVENT DATE: 201611
